FAERS Safety Report 23647428 (Version 1)
Quarter: 2024Q1

REPORT INFORMATION
  Report Type: Spontaneous
  Country: US (occurrence: None)
  Receive Date: 20240318
  Receipt Date: 20240318
  Transmission Date: 20240410
  Serious: No
  Sender: FDA-Public Use
  Company Number: None

PATIENT
  Age: 73 Year
  Sex: Female
  Weight: 102 kg

DRUGS (21)
  1. VERZENIO [Suspect]
     Active Substance: ABEMACICLIB
     Indication: Breast cancer female
     Dosage: FREQUENCY : TWICE A DAY;?
     Route: 048
     Dates: start: 20240122, end: 20240229
  2. AMLODIPINE [Concomitant]
     Active Substance: AMLODIPINE BESYLATE
  3. combigan opth [Concomitant]
  4. HCTZ 12.5mg [Concomitant]
  5. ozempic 0.5mg [Concomitant]
  6. ATORVASTATIN [Concomitant]
     Active Substance: ATORVASTATIN
  7. FAMOTIDINE [Concomitant]
     Active Substance: FAMOTIDINE
  8. LETROZOLE [Concomitant]
     Active Substance: LETROZOLE
  9. METFORMIN [Concomitant]
     Active Substance: METFORMIN HYDROCHLORIDE
  10. metoprolol er 50mg [Concomitant]
  11. sucralfate 1mg [Concomitant]
  12. verapamil 180mg [Concomitant]
  13. hydroxizine 25mg [Concomitant]
  14. ASPIRIN [Concomitant]
     Active Substance: ASPIRIN
  15. GINGER [Concomitant]
     Active Substance: GINGER
  16. IRON [Concomitant]
     Active Substance: IRON
  17. VITAMIN C [Concomitant]
     Active Substance: ASCORBIC ACID
  18. VITAMIN D [Concomitant]
     Active Substance: VITAMIN D NOS
  19. Zinc 50mg [Concomitant]
  20. ONDANSETRON [Concomitant]
     Active Substance: ONDANSETRON
  21. VITAMIN D [Concomitant]
     Active Substance: VITAMIN D NOS

REACTIONS (2)
  - Renal function test abnormal [None]
  - Therapy cessation [None]

NARRATIVE: CASE EVENT DATE: 20240221
